FAERS Safety Report 9511281 (Version 1)
Quarter: 2013Q3

REPORT INFORMATION
  Report Type: Spontaneous
  Country: US (occurrence: None)
  Receive Date: 20130906
  Receipt Date: 20130906
  Transmission Date: 20140515
  Serious: Yes (Life-Threatening, Other)
  Sender: FDA-Public Use
  Company Number: 2013AP007802

PATIENT
  Age: 66 Year
  Sex: Male

DRUGS (1)
  1. LEVETIRACETAM EXTENDED-RELEASE TABLETS [Suspect]
     Indication: CONVULSION
     Dosage: 500 MG; BID; UNK

REACTIONS (4)
  - Major depression [None]
  - Suicide attempt [None]
  - Treatment noncompliance [None]
  - Intentional overdose [None]
